FAERS Safety Report 22530574 (Version 1)
Quarter: 2023Q2

REPORT INFORMATION
  Report Type: Spontaneous
  Country: US (occurrence: None)
  Receive Date: 20230606
  Receipt Date: 20230606
  Transmission Date: 20230721
  Serious: Yes (Other)
  Sender: FDA-Public Use
  Company Number: None

PATIENT
  Age: 68 Year
  Sex: Female
  Weight: 81 kg

DRUGS (11)
  1. LEXISCAN [Suspect]
     Active Substance: REGADENOSON
     Indication: Scan
     Route: 042
     Dates: start: 20230530, end: 20230530
  2. METFORMIN [Concomitant]
  3. LOSARTAN [Concomitant]
     Active Substance: LOSARTAN
  4. SIMVASTATIN [Concomitant]
  5. CELEXA [Concomitant]
     Active Substance: CITALOPRAM HYDROBROMIDE
  6. welbutrin [Concomitant]
  7. PRILOSEC [Concomitant]
     Active Substance: OMEPRAZOLE MAGNESIUM
  8. nexium [Concomitant]
  9. INDERAL [Concomitant]
  10. PRADAXA [Concomitant]
     Active Substance: DABIGATRAN ETEXILATE MESYLATE
  11. TYLENOL [Concomitant]

REACTIONS (2)
  - Supraventricular tachycardia [None]
  - Heart rate irregular [None]

NARRATIVE: CASE EVENT DATE: 20230530
